FAERS Safety Report 9420823 (Version 2)
Quarter: 2013Q3

REPORT INFORMATION
  Report Type: Spontaneous
  Country: FR (occurrence: None)
  Receive Date: 20130723
  Receipt Date: 20130729
  Transmission Date: 20140515
  Serious: Yes (Hospitalization, Other)
  Sender: FDA-Public Use
  Company Number: 2013000170

PATIENT
  Age: 88 Year
  Sex: Female
  Weight: 110 kg

DRUGS (5)
  1. ACEON [Suspect]
     Indication: HYPERTENSION
     Route: 048
  2. AMLODIPINE (AMLODIPINE) [Concomitant]
  3. KARDEGIC (ACETYLSALICYLATE LYSINE) [Concomitant]
  4. LYSANXIA (PRAZEPAM) [Concomitant]
  5. LASILIX (FUROSEMIDE) [Concomitant]

REACTIONS (2)
  - Suicide attempt [None]
  - Intentional overdose [None]
